FAERS Safety Report 24464544 (Version 1)
Quarter: 2024Q4

REPORT INFORMATION
  Report Type: Report from Study
  Country: US (occurrence: US)
  Receive Date: 20241018
  Receipt Date: 20241018
  Transmission Date: 20250114
  Serious: No
  Sender: ROCHE
  Company Number: US-ROCHE-3501819

PATIENT
  Age: 53 Year
  Sex: Female
  Weight: 108.64 kg

DRUGS (11)
  1. XOLAIR [Suspect]
     Active Substance: OMALIZUMAB
     Indication: Chronic spontaneous urticaria
     Dosage: 150 MG VIAL?13/JAL/2023 RECEIVED THE LAST INJECTION
     Route: 058
     Dates: start: 20240125
  2. XOLAIR [Suspect]
     Active Substance: OMALIZUMAB
  3. TIZANIDINE [Concomitant]
     Active Substance: TIZANIDINE
  4. FLONASE [Concomitant]
     Active Substance: FLUTICASONE PROPIONATE
  5. VALACYCLOVIR [Concomitant]
     Active Substance: VALACYCLOVIR HYDROCHLORIDE
  6. EPIPEN [Concomitant]
     Active Substance: EPINEPHRINE
  7. IBUPROFEN [Concomitant]
     Active Substance: IBUPROFEN
  8. DULOXETINE [Concomitant]
     Active Substance: DULOXETINE
  9. CELEBREX [Concomitant]
     Active Substance: CELECOXIB
  10. FLORAJEN3 [Concomitant]
  11. ACTIVATED CHARCOAL [Concomitant]
     Active Substance: ACTIVATED CHARCOAL

REACTIONS (2)
  - Off label use [Unknown]
  - No adverse event [Unknown]
